FAERS Safety Report 12355179 (Version 2)
Quarter: 2016Q2

REPORT INFORMATION
  Report Type: Spontaneous
  Country: PL (occurrence: PL)
  Receive Date: 20160511
  Receipt Date: 20160518
  Transmission Date: 20160815
  Serious: Yes (Death)
  Sender: FDA-Public Use
  Company Number: PL-MYLANLABS-2016M1019426

PATIENT

DRUGS (3)
  1. TRAMAL [Suspect]
     Active Substance: TRAMADOL
     Indication: NEOPLASM MALIGNANT
  2. CHLORPROTHIXENE [Suspect]
     Active Substance: CHLORPROTHIXENE
     Indication: NEOPLASM MALIGNANT
     Route: 065
  3. POLTRAM [Suspect]
     Active Substance: TRAMADOL HYDROCHLORIDE
     Indication: NEOPLASM MALIGNANT
     Route: 065

REACTIONS (2)
  - Toxicity to various agents [Fatal]
  - Medication error [Fatal]
